FAERS Safety Report 7110886-8 (Version None)
Quarter: 2010Q4

REPORT INFORMATION
  Report Type: 
  Country: None (occurrence: None)
  Receive Date: 20101118
  Receipt Date: 20101110
  Transmission Date: 20110411
  Serious: Yes (Hospitalization, Other)
  Sender: FDA-Public Use
  Company Number: PHHY2010US77022

PATIENT
  Sex: Male

DRUGS (5)
  1. TOBI [Suspect]
     Indication: CYSTIC FIBROSIS
     Dosage: 300 MG, BID
  2. PROGRAF [Concomitant]
  3. PANCREATIC ENZYMES [Concomitant]
  4. VITAMIN A W/VITAMIN D/VITAMIN E/VITAMIN K/ [Concomitant]
  5. COLESTIN [Concomitant]

REACTIONS (4)
  - INFLUENZA LIKE ILLNESS [None]
  - LUNG TRANSPLANT [None]
  - LUNG TRANSPLANT REJECTION [None]
  - PYREXIA [None]
